FAERS Safety Report 25522564 (Version 1)
Quarter: 2025Q3

REPORT INFORMATION
  Report Type: Spontaneous
  Country: US (occurrence: US)
  Receive Date: 20250707
  Receipt Date: 20250707
  Transmission Date: 20251020
  Serious: Yes (Other)
  Sender: TAKEDA
  Company Number: US-TAKEDA-2025TUS060655

PATIENT
  Sex: Male

DRUGS (2)
  1. TRINTELLIX [Suspect]
     Active Substance: VORTIOXETINE HYDROBROMIDE
     Indication: Product used for unknown indication
  2. TRINTELLIX [Suspect]
     Active Substance: VORTIOXETINE HYDROBROMIDE

REACTIONS (5)
  - Suicidal ideation [Unknown]
  - Panic attack [Unknown]
  - Dyspnoea [Unknown]
  - Withdrawal syndrome [Unknown]
  - Hyperhidrosis [Unknown]
